FAERS Safety Report 4385876-9 (Version None)
Quarter: 2004Q2

REPORT INFORMATION
  Report Type: 
  Country: None (occurrence: None)
  Receive Date: 20040628
  Receipt Date: 20040618
  Transmission Date: 20050107
  Serious: Yes (Other)
  Sender: FDA-Public Use
  Company Number: JPKYO-S-20040017

PATIENT
  Age: 52 Year
  Sex: Female

DRUGS (7)
  1. NAVELBINE [Suspect]
     Indication: NON-SMALL CELL LUNG CANCER
     Route: 042
     Dates: start: 20030617, end: 20030617
  2. CARBOPLATIN [Suspect]
     Indication: NON-SMALL CELL LUNG CANCER
     Route: 042
     Dates: start: 20030617, end: 20030617
  3. ISOTONIC FLUID [Concomitant]
     Dates: start: 20030617, end: 20030617
  4. ZOFRAN [Concomitant]
     Dates: start: 20030617, end: 20030617
  5. PREDONINE [Concomitant]
     Dates: start: 20030520, end: 20030629
  6. LENDORM [Concomitant]
     Dates: start: 20030509, end: 20030703
  7. SEDIEL [Concomitant]
     Dates: start: 20030412, end: 20030703

REACTIONS (2)
  - DEPRESSED LEVEL OF CONSCIOUSNESS [None]
  - VOMITING [None]
